FAERS Safety Report 6771417-5 (Version None)
Quarter: 2010Q2

REPORT INFORMATION
  Report Type: 
  Country: None (occurrence: None)
  Receive Date: 20100616
  Receipt Date: 20100604
  Transmission Date: 20101027
  Serious: Yes (Other)
  Sender: FDA-Public Use
  Company Number: HOAFF17475

PATIENT
  Age: 54 Year
  Sex: Female

DRUGS (2)
  1. VERMOX [Suspect]
     Indication: HEPATIC ECHINOCOCCIASIS
     Route: 048
  2. VERMOX [Suspect]
     Indication: PULMONARY ECHINOCOCCIASIS
     Route: 048

REACTIONS (5)
  - AGRANULOCYTOSIS [None]
  - ASTHENIA [None]
  - HYPERAEMIA [None]
  - OROPHARYNGEAL PAIN [None]
  - PYREXIA [None]
